FAERS Safety Report 7189859-5 (Version None)
Quarter: 2010Q4

REPORT INFORMATION
  Report Type: 
  Country: None (occurrence: None)
  Receive Date: 20101223
  Receipt Date: 20101213
  Transmission Date: 20110411
  Serious: Yes (Hospitalization, Other)
  Sender: FDA-Public Use
  Company Number: US-ELI_LILLY_AND_COMPANY-US201012004178

PATIENT
  Age: 80 Year
  Sex: Female

DRUGS (6)
  1. FORTEO [Suspect]
     Indication: OSTEOPOROSIS
     Dosage: 20 UG, DAILY (1/D)
     Route: 065
     Dates: start: 20100601
  2. PREMARIN [Concomitant]
     Dosage: UNK, UNKNOWN
     Route: 065
  3. LEVOTHYROXINE SODIUM [Concomitant]
     Dosage: UNK, UNKNOWN
     Route: 065
  4. LISINOPRIL [Concomitant]
     Dosage: UNK, UNKNOWN
     Route: 065
  5. METOPROLOL [Concomitant]
     Dosage: UNK, UNKNOWN
     Route: 065
  6. FERREX [Concomitant]
     Dosage: UNK, UNKNOWN
     Route: 065

REACTIONS (1)
  - BREAST CANCER [None]
